FAERS Safety Report 5601242-X (Version None)
Quarter: 2008Q1

REPORT INFORMATION
  Report Type: 
  Country: None (occurrence: None)
  Receive Date: 20080122
  Receipt Date: 20080122
  Transmission Date: 20080703
  Serious: Yes (Hospitalization)
  Sender: FDA-Public Use
  Company Number: None

PATIENT
  Age: 65 Year
  Sex: Male
  Weight: 125.2 kg

DRUGS (1)
  1. ACETAMINOPHEN/ASPIRIN [Suspect]
     Indication: PAIN
     Dates: end: 20080115

REACTIONS (3)
  - DUODENAL ULCER [None]
  - GASTRIC HAEMORRHAGE [None]
  - GASTRIC ULCER [None]
